FAERS Safety Report 11904878 (Version 1)
Quarter: 2016Q1

REPORT INFORMATION
  Report Type: Spontaneous
  Country: US (occurrence: US)
  Receive Date: 20160108
  Receipt Date: 20160108
  Transmission Date: 20160526
  Serious: Yes (Other)
  Sender: FDA-Public Use
  Company Number: US-ROCHE-1602457

PATIENT
  Sex: Male

DRUGS (1)
  1. ACTIVASE [Suspect]
     Active Substance: ALTEPLASE
     Indication: CEREBROVASCULAR ACCIDENT
     Dosage: WEIGHT-BASED DOSE OF 0.9MG PER KG.
     Route: 065
     Dates: start: 20150630, end: 20150630

REACTIONS (2)
  - Blood pressure decreased [Recovered/Resolved]
  - Hyperhidrosis [Unknown]

NARRATIVE: CASE EVENT DATE: 20150630
